FAERS Safety Report 23723947 (Version 2)
Quarter: 2024Q2

REPORT INFORMATION
  Report Type: Spontaneous
  Country: CA (occurrence: CA)
  Receive Date: 20240409
  Receipt Date: 20240424
  Transmission Date: 20240715
  Serious: Yes (Hospitalization)
  Sender: FDA-Public Use
  Company Number: CA-TEVA-VS-3180604

PATIENT
  Age: 34 Year
  Sex: Female

DRUGS (2)
  1. ETHINYL ESTRADIOL\LEVONORGESTREL [Suspect]
     Active Substance: ETHINYL ESTRADIOL\LEVONORGESTREL
     Indication: Oral contraception
     Dosage: RECEIVED ETHINYLESTRADIOL/LEVONORGESTREL PILL CONTAINING ETHINYL ESTRADIOL 30?G
     Route: 048
  2. IBUPROFEN [Concomitant]
     Active Substance: IBUPROFEN
     Indication: Heavy menstrual bleeding
     Route: 065

REACTIONS (1)
  - Endometriosis [Recovering/Resolving]
